FAERS Safety Report 24320581 (Version 1)
Quarter: 2024Q3

REPORT INFORMATION
  Report Type: Report from Study
  Country: US (occurrence: US)
  Receive Date: 20240915
  Receipt Date: 20240915
  Transmission Date: 20241016
  Serious: Yes (Other)
  Sender: ABBVIE
  Company Number: US-ABBVIE-5916952

PATIENT
  Age: 64 Year
  Sex: Female

DRUGS (1)
  1. SKYRIZI [Suspect]
     Active Substance: RISANKIZUMAB-RZAA
     Indication: Psoriatic arthropathy
     Route: 058
     Dates: start: 20240819

REACTIONS (3)
  - Nerve compression [Not Recovered/Not Resolved]
  - Neck pain [Unknown]
  - Posture abnormal [Unknown]

NARRATIVE: CASE EVENT DATE: 20240801
